FAERS Safety Report 24139161 (Version 2)
Quarter: 2025Q1

REPORT INFORMATION
  Report Type: Spontaneous
  Country: JP (occurrence: JP)
  Receive Date: 20240726
  Receipt Date: 20250312
  Transmission Date: 20250409
  Serious: Yes (Other)
  Sender: BRISTOL-MYERS SQUIBB COMPANY
  Company Number: JP-BRISTOL-MYERS SQUIBB COMPANY-2024-073721

PATIENT
  Age: 52 Year
  Sex: Female
  Weight: 46.4 kg

DRUGS (8)
  1. REVLIMID [Suspect]
     Active Substance: LENALIDOMIDE
     Indication: Plasma cell myeloma
     Dates: start: 20190409
  2. REVLIMID [Suspect]
     Active Substance: LENALIDOMIDE
     Route: 048
     Dates: start: 20190415
  3. REVLIMID [Suspect]
     Active Substance: LENALIDOMIDE
     Route: 048
     Dates: start: 201912
  4. REVLIMID [Suspect]
     Active Substance: LENALIDOMIDE
     Route: 048
     Dates: start: 202006, end: 20210618
  5. LENADEX [Suspect]
     Active Substance: DEXAMETHASONE ACETATE
     Indication: Plasma cell myeloma
     Dates: start: 20190409
  6. LENADEX [Suspect]
     Active Substance: DEXAMETHASONE ACETATE
     Dates: start: 20190415
  7. LENADEX [Suspect]
     Active Substance: DEXAMETHASONE ACETATE
     Dates: start: 201912
  8. LENADEX [Suspect]
     Active Substance: DEXAMETHASONE ACETATE
     Dates: start: 202006, end: 20210618

REACTIONS (2)
  - Plasma cell myeloma [Recovered/Resolved]
  - Therapy non-responder [Unknown]

NARRATIVE: CASE EVENT DATE: 20201015
